FAERS Safety Report 18567502 (Version 1)
Quarter: 2020Q4

REPORT INFORMATION
  Report Type: Spontaneous
  Country: CA (occurrence: CA)
  Receive Date: 20201201
  Receipt Date: 20201201
  Transmission Date: 20210114
  Serious: Yes (Hospitalization, Other)
  Sender: FDA-Public Use
  Company Number: CA-MICRO LABS LIMITED-ML2020-03499

PATIENT
  Age: 60 Year
  Sex: Male

DRUGS (6)
  1. DIPHENHYDRAMINE HYDROCHLORIDE. [Suspect]
     Active Substance: DIPHENHYDRAMINE HYDROCHLORIDE
     Indication: ANXIETY
  2. HYDROMORPHONE [Concomitant]
     Active Substance: HYDROMORPHONE
     Dosage: ORAL SUSTAINED-RELEASE
  3. LORAZEPAM. [Suspect]
     Active Substance: LORAZEPAM
  4. DEXAMETHASONE. [Concomitant]
     Active Substance: DEXAMETHASONE
  5. DIPHENHYDRAMINE HYDROCHLORIDE. [Suspect]
     Active Substance: DIPHENHYDRAMINE HYDROCHLORIDE
     Indication: INSOMNIA
     Dosage: 500 MG OR MORE AT NIGHT FOR MORE THAN 10 YEARS
  6. FENTANYL. [Concomitant]
     Active Substance: FENTANYL
     Dosage: SUBCUTANEOUS INFUSION

REACTIONS (10)
  - Withdrawal syndrome [Unknown]
  - Sinus tachycardia [Unknown]
  - Hyperhidrosis [Recovering/Resolving]
  - Psychotic disorder [Unknown]
  - Delirium [Recovered/Resolved with Sequelae]
  - Intentional product misuse [Unknown]
  - Akathisia [Unknown]
  - Muscle rigidity [Recovering/Resolving]
  - Dysphagia [Unknown]
  - Agitation [Recovered/Resolved]
